FAERS Safety Report 9314661 (Version 1)
Quarter: 2013Q2

REPORT INFORMATION
  Report Type: Spontaneous
  Country: CA (occurrence: CA)
  Receive Date: 20130529
  Receipt Date: 20130529
  Transmission Date: 20140414
  Serious: Yes (Death)
  Sender: FDA-Public Use
  Company Number: CA-BRISTOL-MYERS SQUIBB COMPANY-18916049

PATIENT
  Age: 61 Year
  Sex: Female

DRUGS (1)
  1. AZACTAM [Suspect]
     Indication: PSEUDOMONAS INFECTION

REACTIONS (1)
  - Septic shock [Fatal]
